FAERS Safety Report 5859899-4 (Version None)
Quarter: 2008Q3

REPORT INFORMATION
  Report Type: 
  Country: None (occurrence: None)
  Receive Date: 20080827
  Receipt Date: 20080820
  Transmission Date: 20090109
  Serious: Yes (Hospitalization)
  Sender: FDA-Public Use
  Company Number: FR-AVENTIS-200813080FR

PATIENT
  Age: 77 Year
  Sex: Female

DRUGS (8)
  1. LOVENOX [Suspect]
     Route: 042
     Dates: start: 20080509, end: 20080714
  2. ARIXTRA [Suspect]
     Route: 042
     Dates: start: 20080714, end: 20080718
  3. ORAMORPH SR [Concomitant]
  4. NEXIUM [Concomitant]
     Route: 048
  5. LEVOTHYROX [Concomitant]
     Route: 048
  6. MOTILIUM [Concomitant]
  7. KALEORID [Concomitant]
  8. KARDEGIC                           /00002703/ [Concomitant]
     Route: 048

REACTIONS (4)
  - ANAEMIA [None]
  - LEUKOPENIA [None]
  - NEUTROPENIA [None]
  - THROMBOCYTOPENIA [None]
